FAERS Safety Report 5746125-X (Version None)
Quarter: 2008Q2

REPORT INFORMATION
  Report Type: 
  Country: None (occurrence: None)
  Receive Date: 20080522
  Receipt Date: 20080514
  Transmission Date: 20081010
  Serious: Yes (Other)
  Sender: FDA-Public Use
  Company Number: ES-BAYER-200818426GPV

PATIENT
  Age: 82 Year
  Sex: Male

DRUGS (5)
  1. ACTIRA [Suspect]
     Indication: PNEUMONIA
     Dosage: TOTAL DAILY DOSE: 400 MG  UNIT DOSE: 400 MG
     Route: 048
     Dates: start: 20070917, end: 20070921
  2. ADIRO 100 [Concomitant]
     Indication: TRANSIENT ISCHAEMIC ATTACK
     Dosage: TOTAL DAILY DOSE: 100 MG  UNIT DOSE: 100 MG
     Route: 048
     Dates: start: 20070401
  3. PROSCAR [Concomitant]
     Indication: BENIGN PROSTATIC HYPERPLASIA
     Route: 048
     Dates: start: 20070301
  4. OMNIC [Concomitant]
     Indication: BENIGN PROSTATIC HYPERPLASIA
     Route: 048
     Dates: start: 20060101
  5. ARTEDIL [Concomitant]
     Indication: HYPERTENSION
     Dosage: TOTAL DAILY DOSE: 20 MG
     Route: 048
     Dates: start: 20070301

REACTIONS (2)
  - ABDOMINAL PAIN LOWER [None]
  - INGUINAL HERNIA [None]
